FAERS Safety Report 9806184 (Version 1)
Quarter: 2014Q1

REPORT INFORMATION
  Report Type: Spontaneous
  Country: FR (occurrence: FR)
  Receive Date: 20140109
  Receipt Date: 20140109
  Transmission Date: 20141002
  Serious: Yes (Other)
  Sender: FDA-Public Use
  Company Number: FR-PFIZER INC-2014004275

PATIENT
  Age: 63 Year
  Sex: Male

DRUGS (1)
  1. SALAZOPYRINE [Suspect]

REACTIONS (1)
  - Toxic skin eruption [Unknown]
